FAERS Safety Report 7669288-8 (Version None)
Quarter: 2011Q3

REPORT INFORMATION
  Report Type: 
  Country: None (occurrence: None)
  Receive Date: 20110808
  Receipt Date: 20110802
  Transmission Date: 20111222
  Serious: Yes (Death)
  Sender: FDA-Public Use
  Company Number: PHHY2011FR69816

PATIENT

DRUGS (8)
  1. STEROIDS NOS [Concomitant]
  2. BRONCHODILATORS [Concomitant]
     Dosage: UNK UKN, UNK
  3. PREDNISONE [Concomitant]
     Dosage: 1 MG/KG, QD
  4. MACROLIDES [Concomitant]
     Dosage: UNK UKN, UNK
  5. TACROLIMUS [Concomitant]
     Dosage: UNK UKN, UNK
  6. MYCOPHENOLIC ACID [Suspect]
     Dosage: UNK UKN, UNK
  7. METHYLPREDNISOLONE [Concomitant]
     Dosage: 500 MG, UNK
  8. RITUXIMAB [Concomitant]
     Dosage: 1000 MG, UNK

REACTIONS (6)
  - RESPIRATORY FAILURE [None]
  - PULMONARY FUNCTION TEST DECREASED [None]
  - FORCED EXPIRATORY VOLUME DECREASED [None]
  - DYSPNOEA [None]
  - HYPERCAPNIA [None]
  - VITAL CAPACITY DECREASED [None]
